FAERS Safety Report 4832479-5 (Version None)
Quarter: 2005Q4

REPORT INFORMATION
  Report Type: 
  Country: None (occurrence: None)
  Receive Date: 20051117
  Receipt Date: 20051031
  Transmission Date: 20060501
  Serious: Yes (Other)
  Sender: FDA-Public Use
  Company Number: TRP_0641_2005

PATIENT
  Age: 42 Year
  Sex: Female
  Weight: 52.1637 kg

DRUGS (6)
  1. RIBASPHERE [Suspect]
     Indication: HEPATITIS C
     Dosage: DF, UNK; PO
     Route: 048
     Dates: start: 20050913
  2. PEG-INTRON [Suspect]
     Indication: HEPATITIS C
     Dosage: DF, SC
     Route: 058
     Dates: start: 20050913
  3. ACETAMINOPHEN [Concomitant]
  4. ANTABUSE [Concomitant]
  5. DARVOCET-N 100 [Concomitant]
  6. ACAMPROSATE [Concomitant]

REACTIONS (1)
  - WEIGHT DECREASED [None]
